FAERS Safety Report 20951999 (Version 1)
Quarter: 2022Q2

REPORT INFORMATION
  Report Type: Spontaneous
  Country: US (occurrence: None)
  Receive Date: 20220611
  Receipt Date: 20220611
  Transmission Date: 20220721
  Serious: No
  Sender: FDA-Public Use
  Company Number: None

PATIENT
  Sex: Female

DRUGS (1)
  1. SLYND [Suspect]
     Active Substance: DROSPIRENONE
     Dosage: FREQUENCY : DAILY;?
     Route: 048

REACTIONS (5)
  - Eye pain [None]
  - Migraine [None]
  - Dizziness [None]
  - Asthenia [None]
  - Constipation [None]
